FAERS Safety Report 7941235 (Version 4)
Quarter: 2012Q4

REPORT INFORMATION
  Report Type: 
  Country: US (occurrence: US)
  Receive Date: 20110511
  Receipt Date: 20120831
  Transmission Date: 20130627
  Serious: Yes (Hospitalization, Other)
  Sender: FDA-Public Use
  Company Number: US-ELI_LILLY_AND_COMPANY-US201104008144

PATIENT
  Age: 82 None
  Sex: Female

DRUGS (1)
  1. FORTEO [Suspect]
     Dosage: UNK, unknown
     Route: 058

REACTIONS (3)
  - Thrombosis [Unknown]
  - Fall [Unknown]
  - Emotional distress [Unknown]
